FAERS Safety Report 6964367-2 (Version None)
Quarter: 2010Q3

REPORT INFORMATION
  Report Type: 
  Country: None (occurrence: None)
  Receive Date: 20100903
  Receipt Date: 20100827
  Transmission Date: 20110219
  Serious: Yes (Hospitalization, Other)
  Sender: FDA-Public Use
  Company Number: US-ASTRAZENECA-2008UW26769

PATIENT
  Age: 48 Year
  Sex: Female
  Weight: 59 kg

DRUGS (6)
  1. SEROQUEL [Suspect]
     Indication: BIPOLAR DISORDER
     Dosage: 25 MG TID TO 300 MG TID
     Route: 048
     Dates: start: 20031201, end: 20070101
  2. ABILIFY [Concomitant]
     Dates: start: 20080101
  3. FLOVENT [Concomitant]
     Dosage: TWO PUFFS BID
     Dates: start: 20030725
  4. ALBUTEROL [Concomitant]
     Dosage: PRN
     Dates: start: 20030725
  5. EFFEXOR [Concomitant]
     Dosage: 150-200 MG DAILY
     Dates: start: 20030101
  6. TRAZODONE HCL [Concomitant]
     Dates: start: 20030725

REACTIONS (7)
  - BACK INJURY [None]
  - BACK PAIN [None]
  - BLOOD TRIGLYCERIDES INCREASED [None]
  - DIABETES MELLITUS [None]
  - MENTAL DISORDER [None]
  - POOR QUALITY SLEEP [None]
  - STRESS [None]
